FAERS Safety Report 7936899-1 (Version None)
Quarter: 2011Q4

REPORT INFORMATION
  Report Type: 
  Country: None (occurrence: None)
  Receive Date: 20111123
  Receipt Date: 20111121
  Transmission Date: 20120403
  Serious: Yes (Hospitalization)
  Sender: FDA-Public Use
  Company Number: ZA-BAYER-2011-107903

PATIENT
  Age: 55 Year
  Sex: Male

DRUGS (4)
  1. ALOE VERA [Concomitant]
  2. DEBLASTON [Concomitant]
  3. BETASERON [Suspect]
     Indication: RELAPSING-REMITTING MULTIPLE SCLEROSIS
     Dosage: 8 MIU, QOD
     Route: 058
     Dates: end: 20111001
  4. BETASERON [Suspect]
     Dosage: UNK
     Dates: start: 20111119

REACTIONS (5)
  - INJECTION SITE ERYTHEMA [None]
  - INJECTION SITE PAIN [None]
  - ABDOMINAL PAIN [None]
  - URINARY TRACT INFECTION [None]
  - SOFT TISSUE INJURY [None]
